FAERS Safety Report 17095403 (Version 1)
Quarter: 2019Q4

REPORT INFORMATION
  Report Type: Spontaneous
  Country: SE (occurrence: SE)
  Receive Date: 20191201
  Receipt Date: 20191201
  Transmission Date: 20200122
  Serious: Yes (Disabling)
  Sender: FDA-Public Use
  Company Number: NVSC2019SE048140

PATIENT
  Age: 76 Year
  Sex: Male

DRUGS (17)
  1. ALIMTA [Suspect]
     Active Substance: PEMETREXED DISODIUM
     Indication: LUNG ADENOCARCINOMA
     Dosage: 1050 MG, ONCE/SINGLE (KUR 1)
     Route: 042
     Dates: start: 20190702, end: 20190702
  2. OXASCAND [Concomitant]
     Active Substance: OXAZEPAM
     Indication: PRODUCT USED FOR UNKNOWN INDICATION
     Dosage: 5 MG (1 TAB VID BEHOV, H?GST 3 TAB/DYGN)
     Route: 065
     Dates: start: 20190515
  3. CARBOPLATIN. [Suspect]
     Active Substance: CARBOPLATIN
     Dosage: 675 MG, ONCE/SINGLE (KUR 2)
     Route: 042
     Dates: start: 20190724, end: 20190724
  4. TRIOBE [Concomitant]
     Indication: PRODUCT USED FOR UNKNOWN INDICATION
     Dosage: 1 UNK, QD
     Route: 065
     Dates: start: 20190625
  5. DICLOFENAC [Concomitant]
     Active Substance: DICLOFENAC
     Indication: PRODUCT USED FOR UNKNOWN INDICATION
     Dosage: 50  (1 TABLETT VID BEHOV, H?GST 3/DYGN)
     Route: 065
     Dates: start: 20180507
  6. DOXAZOSIN [Concomitant]
     Active Substance: DOXAZOSIN MESYLATE
     Indication: PRODUCT USED FOR UNKNOWN INDICATION
     Dosage: 4 MG, QD
     Route: 065
     Dates: start: 20181106
  7. MIRAPEXIN [Concomitant]
     Active Substance: PRAMIPEXOLE
     Indication: PRODUCT USED FOR UNKNOWN INDICATION
     Dosage: 0.18 MG (1 TABL VID BEHOV)
     Route: 065
     Dates: start: 20170912
  8. CARBOPLATIN. [Suspect]
     Active Substance: CARBOPLATIN
     Indication: LUNG ADENOCARCINOMA
     Dosage: 675 MG, ONCE/SINGLE (KUR 1)
     Route: 042
     Dates: start: 20190702, end: 20190702
  9. ALIMTA [Suspect]
     Active Substance: PEMETREXED DISODIUM
     Dosage: 1050 MG, ONCE/SINGLE (KUR 2 )
     Route: 042
     Dates: start: 20190724, end: 20190724
  10. MOLLIPECT [Concomitant]
     Active Substance: BROMHEXINE
     Indication: PRODUCT USED FOR UNKNOWN INDICATION
     Dosage: 15 ML (VID BEHOV, H?GST 4 GGR/DAG)
     Route: 065
     Dates: start: 20171030
  11. IMOVANE [Concomitant]
     Active Substance: ZOPICLONE
     Indication: PRODUCT USED FOR UNKNOWN INDICATION
     Dosage: 5 MG  (1 TABL VID BEHOV)
     Route: 065
     Dates: start: 20190625
  12. ZOPICLONE [Concomitant]
     Active Substance: ZOPICLONE
     Indication: PRODUCT USED FOR UNKNOWN INDICATION
     Dosage: 7.5 MG (1 TABL VID BEHOV TILL NATTEN)
     Route: 065
     Dates: start: 20170413
  13. ATORVASTATIN [Suspect]
     Active Substance: ATORVASTATIN
     Indication: PRODUCT USED FOR UNKNOWN INDICATION
     Dosage: UNK
     Route: 048
     Dates: start: 2017, end: 20190809
  14. LOCOID [Concomitant]
     Active Substance: HYDROCORTISONE BUTYRATE
     Indication: PRODUCT USED FOR UNKNOWN INDICATION
     Dosage: UNK (VID BEHOV EN G?NG DAGLIGEN)
     Route: 065
     Dates: start: 20190524
  15. TROMBYL [Concomitant]
     Active Substance: ASPIRIN
     Indication: PRODUCT USED FOR UNKNOWN INDICATION
     Dosage: 75 MG, QD
     Route: 065
     Dates: start: 20170414
  16. EMOVAT [Concomitant]
     Indication: PRODUCT USED FOR UNKNOWN INDICATION
     Dosage: UNK (EN G?NG DAGLIGEN VID BEHOV)
     Route: 065
     Dates: start: 20190521
  17. LOSARTAN AND HYDROCHLOROTHIAZIDE [Concomitant]
     Active Substance: HYDROCHLOROTHIAZIDE\LOSARTAN POTASSIUM
     Indication: PRODUCT USED FOR UNKNOWN INDICATION
     Dosage: 1 DF, QD (STYRKA 100MG/25 MG)
     Route: 065
     Dates: start: 20180508

REACTIONS (2)
  - Myopathy [Not Recovered/Not Resolved]
  - Polyneuropathy [Not Recovered/Not Resolved]

NARRATIVE: CASE EVENT DATE: 20190702
